FAERS Safety Report 5318407-7 (Version None)
Quarter: 2007Q2

REPORT INFORMATION
  Report Type: 
  Country: None (occurrence: None)
  Receive Date: 20070501
  Receipt Date: 20070418
  Transmission Date: 20071010
  Serious: Yes (Death, Life-Threatening)
  Sender: FDA-Public Use
  Company Number: 148142ISR

PATIENT
  Age: 82 Year
  Sex: Male

DRUGS (1)
  1. FLUOXETINE HCL [Suspect]
     Dosage: 20 MG (20 MG, 1 IN 1 D), ORAL
     Route: 048

REACTIONS (1)
  - HYPONATRAEMIA [None]
